FAERS Safety Report 13124796 (Version 1)
Quarter: 2017Q1

REPORT INFORMATION
  Report Type: Spontaneous
  Country: US (occurrence: US)
  Receive Date: 20170117
  Receipt Date: 20170117
  Transmission Date: 20170428
  Serious: Yes (Hospitalization)
  Sender: FDA-Public Use
  Company Number: None

PATIENT
  Sex: Male
  Weight: 85.5 kg

DRUGS (6)
  1. ACLIDINIUM BROMIDE [Concomitant]
     Active Substance: ACLIDINIUM BROMIDE
  2. HYDROCHLOROTHIAZIDE. [Concomitant]
     Active Substance: HYDROCHLOROTHIAZIDE
  3. VIEKIRA XR [Suspect]
     Active Substance: DASABUVIR SODIUM MONOHYDRATE\OMBITASVIR HEMINONAHYDRATE\PARITAPREVIR DIHYDRATE\RITONAVIR
     Route: 048
     Dates: start: 20161229
  4. MULTIVITAMIN [Concomitant]
     Active Substance: VITAMINS
  5. RIBAVIRIN GILEAD SCIENCES [Suspect]
     Active Substance: RIBAVIRIN
     Route: 048
     Dates: start: 20161229
  6. ALBUTEROL. [Concomitant]
     Active Substance: ALBUTEROL

REACTIONS (6)
  - Bundle branch block right [None]
  - Circulatory collapse [None]
  - Head injury [None]
  - Laceration [None]
  - Fall [None]
  - Bundle branch block left [None]

NARRATIVE: CASE EVENT DATE: 20170106
